FAERS Safety Report 7915286-6 (Version None)
Quarter: 2011Q4

REPORT INFORMATION
  Report Type: 
  Country: None (occurrence: None)
  Receive Date: 20111115
  Receipt Date: 20111115
  Transmission Date: 20120403
  Serious: Yes (Other)
  Sender: FDA-Public Use
  Company Number: FR-CEPHALON-US023594

PATIENT
  Sex: Male
  Weight: 74 kg

DRUGS (13)
  1. EZETIMIBE [Concomitant]
     Route: 048
     Dates: start: 20070101
  2. MODAFANIL [Suspect]
     Indication: SOMNOLENCE
     Route: 048
     Dates: start: 20030301
  3. EFFEXOR [Concomitant]
     Indication: FIBROMYALGIA
  4. IRBESARTAN [Concomitant]
     Indication: HYPERTENSION
     Route: 048
     Dates: start: 19940601
  5. ESIDRIX [Concomitant]
     Dates: start: 20040601
  6. ASPEGIC 325 [Concomitant]
  7. CARVEDILOL [Concomitant]
     Indication: HYPERTENSION
     Route: 048
     Dates: start: 20050101
  8. PREVISCAN [Concomitant]
     Indication: ARRHYTHMIA
     Route: 048
     Dates: start: 20080101
  9. EFFEXOR [Concomitant]
     Indication: ASTHENIA
     Route: 065
  10. TAHOR 40 [Concomitant]
     Indication: HYPERCHOLESTEROLAEMIA
     Dates: start: 19980301, end: 20061201
  11. AMLODIPINE BESYLATE [Concomitant]
     Indication: HYPERTENSION
     Route: 048
     Dates: start: 19930501
  12. FLECAINIDE ACETATE [Concomitant]
     Indication: ARRHYTHMIA
     Dates: start: 20010901
  13. MODAFANIL [Suspect]
     Indication: SLEEP APNOEA SYNDROME
     Route: 048
     Dates: start: 20020101

REACTIONS (14)
  - COGNITIVE DISORDER [None]
  - DRUG TOLERANCE [None]
  - FATIGUE [None]
  - FIBROMYALGIA [None]
  - ASTHENIA [None]
  - FEELING DRUNK [None]
  - HYPERHIDROSIS [None]
  - DEREALISATION [None]
  - DIZZINESS [None]
  - MYALGIA [None]
  - DRY MOUTH [None]
  - ANXIETY [None]
  - VERTIGO [None]
  - FLUSHING [None]
